FAERS Safety Report 5450702-3 (Version None)
Quarter: 2007Q3

REPORT INFORMATION
  Report Type: 
  Country: None (occurrence: None)
  Receive Date: 20070910
  Receipt Date: 20070904
  Transmission Date: 20080115
  Serious: Yes (Other)
  Sender: FDA-Public Use
  Company Number: CHPA2007US09353

PATIENT
  Age: 34 Year
  Sex: Female
  Weight: 63.5 kg

DRUGS (2)
  1. COMTREX COLD+COUGH DAY DAY (NCH)(PARACETAMOL, DEXTROMETHORPHAN, PHENYL [Suspect]
     Indication: NASOPHARYNGITIS
     Dosage: ORAL
     Route: 048
     Dates: start: 20070902, end: 20070902
  2. COMTREX COLD+COUGH NIGHT DAY (NCH)(PARACETAMOL, DEXTROMETHORPHAN, PHEN [Suspect]
     Indication: NASOPHARYNGITIS
     Dosage: ORAL
     Route: 048
     Dates: start: 20070902, end: 20070902

REACTIONS (1)
  - ASTHMA [None]
